FAERS Safety Report 12438611 (Version 1)
Quarter: 2016Q2

REPORT INFORMATION
  Report Type: Spontaneous
  Country: US (occurrence: US)
  Receive Date: 20160606
  Receipt Date: 20160606
  Transmission Date: 20160815
  Serious: Yes (Disabling, Other)
  Sender: FDA-Public Use
  Company Number: US-REGENERON PHARMACEUTICALS, INC.-2016-15676

PATIENT

DRUGS (2)
  1. EYLEA [Suspect]
     Active Substance: AFLIBERCEPT
     Indication: DIABETIC RETINAL OEDEMA
     Dosage: 2 MG MILLIGRAM(S), EVERY 4 WEEKS (Q4WKS), LEFT EYE
     Route: 031
     Dates: start: 20160119, end: 20160412
  2. EYLEA [Suspect]
     Active Substance: AFLIBERCEPT
     Dosage: 2 MG MILLIGRAM(S), SINGLE, LAST DOSE PRIOR TO THE EVENT
     Route: 031
     Dates: start: 20160412, end: 20160412

REACTIONS (4)
  - Blindness unilateral [Unknown]
  - Pasteurella infection [Recovered/Resolved]
  - Endophthalmitis [Recovered/Resolved]
  - Vitrectomy [Unknown]

NARRATIVE: CASE EVENT DATE: 20160414
